FAERS Safety Report 6078205-6 (Version None)
Quarter: 2009Q1

REPORT INFORMATION
  Report Type: 
  Country: None (occurrence: None)
  Receive Date: 20090213
  Receipt Date: 20090212
  Transmission Date: 20090719
  Serious: Yes (Death, Other)
  Sender: FDA-Public Use
  Company Number: PHHY2009JP02545

PATIENT
  Age: 42 Year
  Sex: Female

DRUGS (5)
  1. NEORAL [Suspect]
     Indication: STEM CELL TRANSPLANT
  2. CELLCEPT [Concomitant]
     Indication: STEM CELL TRANSPLANT
  3. FLUDARABINE PHOSPHATE [Concomitant]
  4. CYCLOPHOSPHAMIDE [Concomitant]
  5. IRRADIATION [Concomitant]

REACTIONS (7)
  - ACUTE GRAFT VERSUS HOST DISEASE IN SKIN [None]
  - BLISTER [None]
  - RENAL IMPAIRMENT [None]
  - SEPTIC SHOCK [None]
  - SKIN EROSION [None]
  - SKIN LESION [None]
  - THROMBOTIC MICROANGIOPATHY [None]
